FAERS Safety Report 15861525 (Version 1)
Quarter: 2018Q4

REPORT INFORMATION
  Report Type: Spontaneous
  Country: US (occurrence: US)
  Receive Date: 20181229
  Receipt Date: 20181229
  Transmission Date: 20190205
  Serious: Yes (Hospitalization, Other)
  Sender: FDA-Public Use
  Company Number: None

PATIENT
  Age: 23 Year
  Sex: Female
  Weight: 83.91 kg

DRUGS (1)
  1. MIRENA [Suspect]
     Active Substance: LEVONORGESTREL
     Dates: start: 20181116, end: 20181212

REACTIONS (7)
  - Uterine spasm [None]
  - Haemorrhage [None]
  - Wrong technique in device usage process [None]
  - Device dislocation [None]
  - Discomfort [None]
  - Pain [None]
  - Headache [None]

NARRATIVE: CASE EVENT DATE: 20181207
